FAERS Safety Report 23971968 (Version 2)
Quarter: 2024Q4

REPORT INFORMATION
  Report Type: Spontaneous
  Country: DE (occurrence: DE)
  Receive Date: 20240613
  Receipt Date: 20241122
  Transmission Date: 20250114
  Serious: Yes (Hospitalization)
  Sender: TEVA
  Company Number: DE-TEVA-VS-3207250

PATIENT
  Age: 56 Year
  Sex: Male

DRUGS (1)
  1. SILDENAFIL [Suspect]
     Active Substance: SILDENAFIL
     Indication: Product used for unknown indication
     Dosage: ONE TABLET
     Route: 065

REACTIONS (9)
  - Methaemoglobinaemia [Recovered/Resolved]
  - Physical product label issue [Unknown]
  - Toxicity to various agents [Unknown]
  - Metabolic acidosis [Recovered/Resolved]
  - Hypoxia [Recovered/Resolved]
  - Product contamination [Unknown]
  - Product blister packaging issue [Unknown]
  - Syncope [Recovered/Resolved]
  - Intentional product misuse [Unknown]
